FAERS Safety Report 9150151 (Version 1)
Quarter: 2013Q1

REPORT INFORMATION
  Report Type: Spontaneous
  Country: US (occurrence: None)
  Receive Date: 20130204
  Receipt Date: 20130204
  Transmission Date: 20140127
  Serious: Yes (Other)
  Sender: FDA-Public Use
  Company Number: 2013P1001560

PATIENT
  Age: 59 Year
  Sex: Female

DRUGS (7)
  1. BELLADONNA ALKALOIDS\PHENOBARBITAL [Suspect]
     Indication: IRRITABLE BOWEL SYNDROME
     Route: 048
     Dates: start: 1993
  2. DIAZEPAM [Suspect]
  3. VICODIN [Suspect]
  4. ATIVAN [Suspect]
  5. STOOL SOFTENER [Concomitant]
  6. FIBER SUPPLEMENT [Concomitant]
  7. LITHIUM 450 MG ER [Concomitant]

REACTIONS (7)
  - Incorrect dose administered [None]
  - Drug withdrawal syndrome [None]
  - Hypoaesthesia [None]
  - Paraesthesia [None]
  - Headache [None]
  - Tremor [None]
  - Skin disorder [None]
